FAERS Safety Report 9337435 (Version 1)
Quarter: 2013Q2

REPORT INFORMATION
  Report Type: Spontaneous
  Country: GB (occurrence: GB)
  Receive Date: 20130607
  Receipt Date: 20130607
  Transmission Date: 20140414
  Serious: Yes (Other)
  Sender: FDA-Public Use
  Company Number: GB-CELGENEUS-167-21880-13052220

PATIENT
  Age: 85 Year
  Sex: Male

DRUGS (5)
  1. REVLIMID [Suspect]
     Indication: PLASMA CELL MYELOMA
     Dosage: 25 MILLIGRAM
     Route: 048
     Dates: start: 20130411
  2. DEXAMETHASONE [Suspect]
     Indication: PLASMA CELL MYELOMA
     Route: 065
     Dates: start: 20130411
  3. CO-TRIMOXAZOLE [Concomitant]
     Indication: ANTIBIOTIC PROPHYLAXIS
     Dosage: 960 MILLIGRAM
     Route: 065
  4. ENOXAPARIN [Concomitant]
     Indication: THROMBOSIS PROPHYLAXIS
     Dosage: 40 MILLIGRAM
     Route: 065
  5. RANITIDINE [Concomitant]
     Indication: PROPHYLAXIS
     Dosage: 300 MILLIGRAM
     Route: 065

REACTIONS (1)
  - Gynaecomastia [Not Recovered/Not Resolved]
